FAERS Safety Report 19469495 (Version 1)
Quarter: 2021Q2

REPORT INFORMATION
  Report Type: Spontaneous
  Country: US (occurrence: US)
  Receive Date: 20210629
  Receipt Date: 20210629
  Transmission Date: 20210717
  Serious: No
  Sender: FDA-Public Use
  Company Number: US-ASTRAZENECA-2021A488737

PATIENT
  Sex: Female

DRUGS (1)
  1. BYDUREON BCISE [Suspect]
     Active Substance: EXENATIDE
     Indication: TYPE 2 DIABETES MELLITUS
     Route: 058
     Dates: start: 2016

REACTIONS (6)
  - Feeling abnormal [Unknown]
  - Poor quality device used [Unknown]
  - Device leakage [Unknown]
  - Sick building syndrome [Unknown]
  - Incorrect dose administered [Unknown]
  - Vomiting [Not Recovered/Not Resolved]
